FAERS Safety Report 9140100 (Version 7)
Quarter: 2014Q4

REPORT INFORMATION
  Report Type: Report from Study
  Country: NO (occurrence: NO)
  Receive Date: 20130305
  Receipt Date: 20141223
  Transmission Date: 20150529
  Serious: Yes (Hospitalization, Other)
  Sender: FDA-Public Use
  Company Number: NO-ASTRAZENECA-2013SE14193

PATIENT
  Age: 31515 Day
  Sex: Female

DRUGS (13)
  1. PLACEBO [Suspect]
     Active Substance: UNSPECIFIED INGREDIENT
     Indication: ACUTE CORONARY SYNDROME
     Route: 048
     Dates: start: 20120508, end: 20120915
  2. AZD6140 [Suspect]
     Active Substance: TICAGRELOR
     Indication: CORONARY ARTERY DISEASE
     Route: 048
     Dates: start: 20121129, end: 20140323
  3. HEPARIN [Suspect]
     Active Substance: HEPARIN SODIUM
     Route: 065
  4. AZD6140 [Suspect]
     Active Substance: TICAGRELOR
     Indication: CORONARY ARTERY DISEASE
     Dosage: MODIFIED STUDY TREATMENT
     Route: 048
     Dates: start: 20120508, end: 20120915
  5. AZD6140 [Suspect]
     Active Substance: TICAGRELOR
     Indication: CORONARY ARTERY DISEASE
     Route: 048
     Dates: start: 20110606, end: 20120326
  6. SELOZOK [Suspect]
     Active Substance: METOPROLOL SUCCINATE
     Indication: CORONARY ARTERY DISEASE
     Route: 048
     Dates: end: 20120917
  7. SELOZOK [Suspect]
     Active Substance: METOPROLOL SUCCINATE
     Indication: HYPERTENSION
     Route: 048
     Dates: end: 20120917
  8. SIMVATATIN [Concomitant]
     Indication: CORONARY ARTERY DISEASE
     Route: 048
  9. LANZOPRAZOL [Concomitant]
     Active Substance: LANSOPRAZOLE
     Indication: GASTRITIS
     Route: 048
  10. AZD6140 [Suspect]
     Active Substance: TICAGRELOR
     Indication: CORONARY ARTERY DISEASE
     Route: 048
     Dates: start: 20140411, end: 20140720
  11. ASPIRIN. [Suspect]
     Active Substance: ASPIRIN
     Route: 048
  12. DETRUSITOL [Concomitant]
     Active Substance: TOLTERODINE TARTRATE
     Indication: URGE INCONTINENCE
     Route: 048
  13. ARTHROTEC [Concomitant]
     Active Substance: DICLOFENAC SODIUM\MISOPROSTOL
     Indication: OSTEOARTHRITIS
     Route: 048

REACTIONS (3)
  - Atrioventricular block [Recovered/Resolved]
  - Microcytic anaemia [Recovered/Resolved]
  - Post procedural haematoma [Recovered/Resolved]

NARRATIVE: CASE EVENT DATE: 20120916
